FAERS Safety Report 5689401-1 (Version None)
Quarter: 2008Q1

REPORT INFORMATION
  Report Type: 
  Country: None (occurrence: None)
  Receive Date: 20080331
  Receipt Date: 20080310
  Transmission Date: 20080703
  Serious: Yes (Hospitalization)
  Sender: FDA-Public Use
  Company Number: DE-ABBOTT-08P-062-0441561-00

PATIENT
  Age: 56 Year
  Sex: Male
  Weight: 89 kg

DRUGS (4)
  1. HUMIRA [Suspect]
     Indication: ANKYLOSING SPONDYLITIS
     Route: 058
     Dates: start: 20051101, end: 20070924
  2. HUMIRA [Suspect]
     Dates: start: 20071124
  3. IBUPROFEN [Concomitant]
     Indication: ANKYLOSING SPONDYLITIS
  4. PREDNISOLONE [Concomitant]
     Indication: ANKYLOSING SPONDYLITIS

REACTIONS (1)
  - SURGERY [None]
